FAERS Safety Report 26121442 (Version 2)
Quarter: 2025Q4

REPORT INFORMATION
  Report Type: Spontaneous
  Country: AU (occurrence: AU)
  Receive Date: 20251204
  Receipt Date: 20251209
  Transmission Date: 20260118
  Serious: Yes (Other)
  Sender: SAMSUNG BIOEPIS
  Company Number: AU-SAMSUNG BIOEPIS-SB-2025-40055

PATIENT
  Sex: Male
  Weight: 120 kg

DRUGS (1)
  1. RENFLEXIS [Suspect]
     Active Substance: INFLIXIMAB-ABDA
     Indication: Colitis ulcerative
     Dosage: 5MG/KG WEEKS 0 AND 2, 600MG - 2 DOSES;

REACTIONS (2)
  - Colitis ulcerative [Unknown]
  - Therapeutic product effect decreased [Unknown]
